FAERS Safety Report 11608434 (Version 1)
Quarter: 2015Q4

REPORT INFORMATION
  Report Type: Spontaneous
  Country: BR (occurrence: BR)
  Receive Date: 20151007
  Receipt Date: 20151007
  Transmission Date: 20160304
  Serious: Yes (Death, Congenital Anomaly)
  Sender: FDA-Public Use
  Company Number: BR-MYLANLABS-2015M1033627

PATIENT

DRUGS (2)
  1. VALPROATE [Suspect]
     Active Substance: VALPROATE SODIUM
     Indication: EPILEPSY
     Dosage: 1500MG
     Route: 064
  2. PHENOBARBITAL. [Suspect]
     Active Substance: PHENOBARBITAL
     Indication: EPILEPSY
     Dosage: 150MG
     Route: 064

REACTIONS (8)
  - Cleft lip and palate [Fatal]
  - Ventricular septal defect [Fatal]
  - Congenital anomaly [Fatal]
  - Microglossia [Fatal]
  - Foetal exposure during pregnancy [Fatal]
  - Low set ears [Fatal]
  - Maternal drugs affecting foetus [Fatal]
  - Developmental hip dysplasia [Fatal]
